FAERS Safety Report 5509168-7 (Version None)
Quarter: 2007Q4

REPORT INFORMATION
  Report Type: 
  Country: None (occurrence: None)
  Receive Date: 20071031
  Receipt Date: 20070702
  Transmission Date: 20080405
  Serious: No
  Sender: FDA-Public Use
  Company Number: 2007PV033085

PATIENT
  Sex: Female

DRUGS (2)
  1. SYMLIN [Suspect]
     Indication: TYPE 1 DIABETES MELLITUS
     Dosage: 18 MCG; TID; SC; 12 MCG; TID; SC
     Route: 058
     Dates: start: 20070514, end: 20070101
  2. SYMLIN [Suspect]
     Indication: TYPE 1 DIABETES MELLITUS
     Dosage: 18 MCG; TID; SC; 12 MCG; TID; SC
     Route: 058
     Dates: start: 20070101

REACTIONS (3)
  - BLOOD GLUCOSE DECREASED [None]
  - FATIGUE [None]
  - NAUSEA [None]
